FAERS Safety Report 13720037 (Version 2)
Quarter: 2017Q3

REPORT INFORMATION
  Report Type: Spontaneous
  Country: JP (occurrence: JP)
  Receive Date: 20170705
  Receipt Date: 20170706
  Transmission Date: 20171127
  Serious: Yes (Other)
  Sender: FDA-Public Use
  Company Number: JP-ROCHE-1959042

PATIENT
  Age: 14 Year
  Sex: Female

DRUGS (1)
  1. AVASTIN [Suspect]
     Active Substance: BEVACIZUMAB
     Indication: GLAUCOMA
     Dosage: DOSAGE IS UNCERTAIN.
     Route: 031

REACTIONS (2)
  - Off label use [Unknown]
  - Exudative retinopathy [Unknown]
